FAERS Safety Report 6906433-3 (Version None)
Quarter: 2010Q3

REPORT INFORMATION
  Report Type: 
  Country: None (occurrence: None)
  Receive Date: 20100804
  Receipt Date: 20100729
  Transmission Date: 20110219
  Serious: Yes (Hospitalization)
  Sender: FDA-Public Use
  Company Number: B0667557A

PATIENT
  Sex: Male

DRUGS (3)
  1. ABACAVIR SULFATE AND LAMIVUDINE [Suspect]
     Indication: HIV INFECTION
     Dosage: 1TAB PER DAY
     Route: 048
     Dates: start: 20070917
  2. REYATAZ [Suspect]
     Indication: HIV INFECTION
     Dosage: 2CAP PER DAY
     Route: 048
     Dates: start: 20050816
  3. NORVIR [Suspect]
     Indication: HIV INFECTION
     Dosage: 100MG PER DAY
     Route: 048
     Dates: start: 20050816

REACTIONS (1)
  - RENAL COLIC [None]
